FAERS Safety Report 9352045 (Version 1)
Quarter: 2013Q2

REPORT INFORMATION
  Report Type: Spontaneous
  Country: BR (occurrence: BR)
  Receive Date: 20130617
  Receipt Date: 20130617
  Transmission Date: 20140414
  Serious: Yes (Other)
  Sender: FDA-Public Use
  Company Number: PHHY2013BR046640

PATIENT
  Age: 30 Year
  Sex: Male

DRUGS (2)
  1. RITALINA [Suspect]
     Indication: ATTENTION DEFICIT/HYPERACTIVITY DISORDER
     Dosage: 2 DF, QD
     Route: 048
  2. RITALIN LA [Suspect]
     Dosage: UNK UKN, UNK
     Route: 048

REACTIONS (6)
  - Drug dependence [Unknown]
  - Feeling abnormal [Unknown]
  - Apathy [Not Recovered/Not Resolved]
  - Stress [Not Recovered/Not Resolved]
  - Agitation [Not Recovered/Not Resolved]
  - Nervousness [Not Recovered/Not Resolved]
